FAERS Safety Report 4688266-4 (Version None)
Quarter: 2005Q2

REPORT INFORMATION
  Report Type: 
  Country: None (occurrence: None)
  Receive Date: 20050610
  Receipt Date: 20050302
  Transmission Date: 20051028
  Serious: Yes (Hospitalization)
  Sender: FDA-Public Use
  Company Number: US-MERCK-0503USA00611

PATIENT
  Age: 69 Year
  Sex: Female
  Weight: 54 kg

DRUGS (7)
  1. VIOXX [Suspect]
     Indication: STRESS FRACTURE
     Route: 048
     Dates: start: 19990101, end: 20030301
  2. VIOXX [Suspect]
     Route: 048
     Dates: start: 19990201, end: 20030301
  3. ZOCOR [Suspect]
     Route: 048
  4. HYDROCODONE BITARTRATE [Concomitant]
     Route: 065
     Dates: start: 19900101, end: 20040101
  5. ASPIRIN [Concomitant]
     Route: 065
     Dates: start: 20000124
  6. LEVOTHYROXINE SODIUM [Concomitant]
     Indication: HYPOTHYROIDISM
     Route: 065
  7. ESTROGENS (UNSPECIFIED) [Concomitant]
     Route: 065

REACTIONS (16)
  - ABSCESS [None]
  - ARTHROPATHY [None]
  - BACTERIAL INFECTION [None]
  - CONSTIPATION [None]
  - CORONARY ARTERY DISEASE [None]
  - DEPRESSION [None]
  - DUODENAL STENOSIS [None]
  - EMOTIONAL DISTRESS [None]
  - GALLBLADDER DISORDER [None]
  - GASTROINTESTINAL HAEMORRHAGE [None]
  - MYALGIA [None]
  - MYOCARDIAL INFARCTION [None]
  - NAUSEA [None]
  - PANCREATITIS [None]
  - PEPTIC ULCER [None]
  - THORACIC CAVITY DRAINAGE [None]
